FAERS Safety Report 17401024 (Version 1)
Quarter: 2020Q1

REPORT INFORMATION
  Report Type: Spontaneous
  Country: IL (occurrence: IL)
  Receive Date: 20200211
  Receipt Date: 20200211
  Transmission Date: 20200409
  Serious: Yes (Other)
  Sender: FDA-Public Use
  Company Number: IL-BIOVITRUM-2020IL0627

PATIENT
  Age: 15 Year
  Sex: Male

DRUGS (3)
  1. PREDNISONE. [Concomitant]
     Active Substance: PREDNISONE
  2. COLCHICINE. [Concomitant]
     Active Substance: COLCHICINE
     Dosage: 1 MG/DAY
  3. KINERET [Suspect]
     Active Substance: ANAKINRA
     Indication: PERICARDITIS
     Route: 058

REACTIONS (6)
  - Systemic candida [Unknown]
  - Off label use [Unknown]
  - Neutropenia [Recovered/Resolved]
  - C-reactive protein increased [Recovering/Resolving]
  - Pyrexia [Recovered/Resolved]
  - Tricuspid valve incompetence [Unknown]
